FAERS Safety Report 21601389 (Version 1)
Quarter: 2022Q4

REPORT INFORMATION
  Report Type: Spontaneous
  Country: US (occurrence: US)
  Receive Date: 20221116
  Receipt Date: 20221116
  Transmission Date: 20230113
  Serious: No
  Sender: FDA-Public Use
  Company Number: US-BRISTOL-MYERS SQUIBB COMPANY-2022-138135

PATIENT
  Age: 52 Year
  Sex: Female
  Weight: 84.82 kg

DRUGS (1)
  1. REVLIMID [Suspect]
     Active Substance: LENALIDOMIDE
     Indication: Breast cancer female
     Dosage: FREQUENCY: 14D OF 21D CYCLE
     Route: 048

REACTIONS (2)
  - Fatigue [Unknown]
  - Product use in unapproved indication [Unknown]
